FAERS Safety Report 14045790 (Version 1)
Quarter: 2017Q4

REPORT INFORMATION
  Report Type: Spontaneous
  Country: JP (occurrence: JP)
  Receive Date: 20171005
  Receipt Date: 20171005
  Transmission Date: 20180321
  Serious: Yes (Other)
  Sender: FDA-Public Use
  Company Number: JP-PFIZER INC-2017429006

PATIENT
  Age: 69 Year
  Sex: Male

DRUGS (1)
  1. MEROPEN [Suspect]
     Active Substance: MEROPENEM
     Dosage: UNK

REACTIONS (2)
  - Cardiac failure [Unknown]
  - Myocarditis septic [Unknown]
